FAERS Safety Report 7471728-4 (Version None)
Quarter: 2011Q2

REPORT INFORMATION
  Report Type: 
  Country: None (occurrence: None)
  Receive Date: 20110511
  Receipt Date: 20110112
  Transmission Date: 20111010
  Serious: No
  Sender: FDA-Public Use
  Company Number: A0789561A

PATIENT
  Age: 44 Year
  Sex: Female

DRUGS (1)
  1. TYKERB [Suspect]
     Dosage: 1250MG PER DAY
     Route: 065
     Dates: start: 20090529

REACTIONS (5)
  - DIARRHOEA [None]
  - NAUSEA [None]
  - FATIGUE [None]
  - TONGUE ULCERATION [None]
  - DISEASE PROGRESSION [None]
